FAERS Safety Report 21997233 (Version 1)
Quarter: 2023Q1

REPORT INFORMATION
  Report Type: Spontaneous
  Country: IT (occurrence: IT)
  Receive Date: 20230216
  Receipt Date: 20230216
  Transmission Date: 20230417
  Serious: Yes (Other)
  Sender: FDA-Public Use
  Company Number: IT-MINISAL02-907071

PATIENT
  Age: 29 Year
  Sex: Female
  Weight: 46 kg

DRUGS (3)
  1. CIPROFLOXACIN [Suspect]
     Active Substance: CIPROFLOXACIN
     Indication: Appendicitis
     Dosage: 500 MILLIGRAM, BID
     Route: 048
     Dates: start: 20221204, end: 20221207
  2. CIPROFLOXACIN [Suspect]
     Active Substance: CIPROFLOXACIN
     Dosage: UNK
     Route: 048
     Dates: start: 20221204, end: 20221207
  3. LEVOFLOXACIN [Suspect]
     Active Substance: LEVOFLOXACIN
     Indication: Appendicitis
     Dosage: 500 MILLIGRAM, BID
     Route: 048
     Dates: start: 20221213, end: 20221218

REACTIONS (6)
  - Abdominal pain upper [Not Recovered/Not Resolved]
  - Weight decreased [Not Recovered/Not Resolved]
  - Panic attack [Not Recovered/Not Resolved]
  - Night sweats [Not Recovered/Not Resolved]
  - Malaise [Not Recovered/Not Resolved]
  - Anxiety [Not Recovered/Not Resolved]

NARRATIVE: CASE EVENT DATE: 20221204
